FAERS Safety Report 7907867-0 (Version None)
Quarter: 2011Q4

REPORT INFORMATION
  Report Type: 
  Country: None (occurrence: None)
  Receive Date: 20111110
  Receipt Date: 20111101
  Transmission Date: 20120403
  Serious: Yes (Other)
  Sender: FDA-Public Use
  Company Number: US-ASTRAZENECA-2011SE64172

PATIENT
  Age: 62 Year
  Sex: Female

DRUGS (3)
  1. PLAVIX [Concomitant]
  2. ATACAND [Suspect]
     Indication: BLOOD PRESSURE
     Route: 048
     Dates: start: 20090101, end: 20090201
  3. LIPITOR [Concomitant]

REACTIONS (6)
  - FACIAL PARESIS [None]
  - CEREBRAL ISCHAEMIA [None]
  - CEREBROVASCULAR ACCIDENT [None]
  - HYPERTENSION [None]
  - APHASIA [None]
  - DRUG INEFFECTIVE [None]
